FAERS Safety Report 6566650-1 (Version None)
Quarter: 2010Q1

REPORT INFORMATION
  Report Type: 
  Country: None (occurrence: None)
  Receive Date: 20100129
  Receipt Date: 20090729
  Transmission Date: 20100710
  Serious: Yes (Other)
  Sender: FDA-Public Use
  Company Number: 2009BH012126

PATIENT
  Age: 24 Year
  Sex: Female

DRUGS (8)
  1. DIANEAL [Suspect]
     Indication: PERITONEAL DIALYSIS
     Dosage: 2 L; EVERY DAY; IP
     Route: 033
     Dates: start: 20090601
  2. CARVEDILOL [Concomitant]
  3. CLONAZEPAM [Concomitant]
  4. FLAGYL [Concomitant]
  5. LISINOPRIL [Concomitant]
  6. RENAGEL [Concomitant]
  7. SERTRALINE HCL [Concomitant]
  8. HEPARIN [Concomitant]

REACTIONS (2)
  - FALSE POSITIVE LABORATORY RESULT [None]
  - PERITONITIS [None]
